FAERS Safety Report 23026274 (Version 15)
Quarter: 2024Q2

REPORT INFORMATION
  Report Type: Report from Study
  Country: CL (occurrence: CL)
  Receive Date: 20231004
  Receipt Date: 20240628
  Transmission Date: 20240716
  Serious: Yes (Hospitalization, Other)
  Sender: FDA-Public Use
  Company Number: CL-SA-SAC20230803000923

PATIENT
  Age: 32 Year
  Sex: Female

DRUGS (9)
  1. IMIGLUCERASE [Suspect]
     Active Substance: IMIGLUCERASE
     Indication: Gaucher^s disease
     Dosage: 4000 IU (10 VIALS), QOW
     Route: 042
  2. PREGABALIN [Concomitant]
     Active Substance: PREGABALIN
     Indication: Analgesic therapy
     Dosage: UNK
  3. CLONAZEPAM [Concomitant]
     Active Substance: CLONAZEPAM
     Indication: Analgesic therapy
     Dosage: UNK
  4. CHLORPHENIRAMINE MALEATE [Concomitant]
     Active Substance: CHLORPHENIRAMINE MALEATE
     Dosage: UNK
  5. BETAMETHASONE [Concomitant]
     Active Substance: BETAMETHASONE\BETAMETHASONE DIPROPIONATE
     Dosage: UNK
  6. LOSARTAN [Concomitant]
     Active Substance: LOSARTAN
     Indication: Hypertension
     Dosage: UNK
  7. DULOXETINE [Concomitant]
     Active Substance: DULOXETINE
     Indication: Pain
     Dosage: 60 1-0-1
  8. AMLODIPINE [Concomitant]
     Active Substance: AMLODIPINE BESYLATE
     Indication: Hypertension
     Dosage: UNK
  9. TRAMADOL [Concomitant]
     Active Substance: TRAMADOL\TRAMADOL HYDROCHLORIDE
     Dosage: UNK

REACTIONS (20)
  - Hepatitis acute [Recovering/Resolving]
  - Hepatic lesion [Unknown]
  - Pyrexia [Unknown]
  - Hepatomegaly [Unknown]
  - Skin reaction [Unknown]
  - Fibromyalgia [Unknown]
  - Myalgia [Unknown]
  - Rash [Unknown]
  - Bone infarction [Recovering/Resolving]
  - Bone pain [Recovering/Resolving]
  - Spinal pain [Recovering/Resolving]
  - Pain in extremity [Unknown]
  - Blood pressure increased [Unknown]
  - Diastolic hypertension [Unknown]
  - Hypertension [Recovered/Resolved]
  - Arthritis enteropathic [Unknown]
  - Blood pressure diastolic increased [Unknown]
  - Smear cervix abnormal [Unknown]
  - Cystitis [Recovered/Resolved]
  - Pyrexia [Recovered/Resolved]

NARRATIVE: CASE EVENT DATE: 20230101
